FAERS Safety Report 4383435-5 (Version None)
Quarter: 2004Q2

REPORT INFORMATION
  Report Type: 
  Country: None (occurrence: None)
  Receive Date: 20040618
  Receipt Date: 20040611
  Transmission Date: 20050107
  Serious: Yes (Hospitalization)
  Sender: FDA-Public Use
  Company Number: 200411988GDS

PATIENT
  Age: 78 Year
  Sex: Female

DRUGS (7)
  1. ASPIRIN [Suspect]
     Dosage: 100  MG, TOTAL DAILY, ORAL
     Route: 048
     Dates: end: 20040405
  2. PHENPROCOUMON [Suspect]
     Dosage: PRN, ORAL
     Route: 048
     Dates: end: 20040321
  3. AMIODARONE [Concomitant]
  4. TRAMADOL [Concomitant]
  5. HYDROXYCARBAMIDE [Concomitant]
  6. MAGNESIUM [Concomitant]
  7. ESOMEPRAZOLE [Concomitant]

REACTIONS (1)
  - PERICARDIAL EFFUSION [None]
